FAERS Safety Report 12693324 (Version 2)
Quarter: 2016Q3

REPORT INFORMATION
  Report Type: Spontaneous
  Country: US (occurrence: US)
  Receive Date: 20160829
  Receipt Date: 20160923
  Transmission Date: 20161109
  Serious: Yes (Hospitalization, Other)
  Sender: FDA-Public Use
  Company Number: US-PFIZER INC-2016399399

PATIENT
  Age: 79 Year
  Sex: Female
  Weight: 62 kg

DRUGS (5)
  1. CELEBREX [Suspect]
     Active Substance: CELECOXIB
     Indication: CYSTITIS
     Dosage: 200 MG, 1X/DAY (IN MORNING)
     Dates: start: 20160802, end: 20160812
  2. AVAPRO [Concomitant]
     Active Substance: IRBESARTAN
     Indication: HYPERTENSION
     Dosage: 300 MG, 1X/DAY, ONCE AT NIGHT
  3. BACTRIM [Concomitant]
     Active Substance: SULFAMETHOXAZOLE\TRIMETHOPRIM
     Dosage: UNK UNK, 2X/DAY
     Dates: end: 20160823
  4. NITROFURANTOIN. [Concomitant]
     Active Substance: NITROFURANTOIN
     Dosage: 1 DF, 2X/DAY (7 DAY)
     Route: 048
     Dates: start: 20160827
  5. CELEBREX [Suspect]
     Active Substance: CELECOXIB
     Indication: LIMB INJURY
     Dosage: 200 MG, 1X/DAY, ONCE IN THE MORNING
     Dates: start: 201607, end: 201608

REACTIONS (13)
  - Large intestinal haemorrhage [Unknown]
  - Urinary tract infection [Recovered/Resolved]
  - Nausea [Unknown]
  - Feeding disorder [Unknown]
  - Haematochezia [Recovered/Resolved]
  - Impaired work ability [Unknown]
  - Off label use [Unknown]
  - Cough [Recovered/Resolved with Sequelae]
  - Blood urine present [Recovered/Resolved]
  - Muscle spasms [Unknown]
  - Syncope [Unknown]
  - Malaise [Not Recovered/Not Resolved]
  - Abasia [Unknown]

NARRATIVE: CASE EVENT DATE: 201607
